FAERS Safety Report 6348509-8 (Version None)
Quarter: 2009Q3

REPORT INFORMATION
  Report Type: 
  Country: None (occurrence: None)
  Receive Date: 20090911
  Receipt Date: 20080225
  Transmission Date: 20100115
  Serious: Yes (Hospitalization, Other)
  Sender: FDA-Public Use
  Company Number: US-ASTRAZENECA-2007UW12468

PATIENT
  Age: 17729 Day
  Sex: Female
  Weight: 108.9 kg

DRUGS (29)
  1. SEROQUEL [Suspect]
     Indication: SLEEP DISORDER
     Route: 048
     Dates: start: 20040101, end: 20060101
  2. SEROQUEL [Suspect]
     Route: 048
  3. TOPROL-XL [Concomitant]
     Route: 048
     Dates: start: 20040623
  4. ASPIRIN [Concomitant]
     Route: 048
     Dates: start: 20040623
  5. IMDUR [Concomitant]
     Route: 048
     Dates: start: 20040623
  6. NITROGLYCERIN [Concomitant]
     Route: 060
     Dates: start: 20040623
  7. LEXAPRO [Concomitant]
     Route: 048
     Dates: start: 20040519
  8. GLIPIZIDE [Concomitant]
     Route: 048
     Dates: start: 20030812
  9. LISINOPRIL [Concomitant]
     Route: 048
     Dates: start: 20040519
  10. GLUCOPHAGE [Concomitant]
     Route: 048
     Dates: start: 20040519
  11. PLAVIX [Concomitant]
     Route: 048
     Dates: start: 20040730
  12. ALTACE [Concomitant]
     Route: 048
     Dates: start: 20040730
  13. CRESTOR [Concomitant]
     Route: 048
     Dates: start: 20040730
  14. SINEMET [Concomitant]
     Dosage: 25-100 MG, ONE TABLET, TWICE A DAY
     Route: 048
     Dates: start: 20040730
  15. MICRONASE [Concomitant]
     Route: 048
     Dates: start: 20040730
  16. NOVOLIN INSULIN [Concomitant]
     Route: 058
     Dates: start: 20040730
  17. LANTUS [Concomitant]
     Dates: start: 20040801
  18. ZOCOR [Concomitant]
     Route: 048
     Dates: start: 20040706
  19. CLONIDINE [Concomitant]
     Route: 048
     Dates: start: 20060112
  20. VASOTEC [Concomitant]
     Route: 048
     Dates: start: 20060112
  21. HUMULIN 70/30 [Concomitant]
     Route: 058
     Dates: start: 20060112
  22. NEURONTIN [Concomitant]
     Route: 048
     Dates: start: 20060112
  23. REGLAN [Concomitant]
     Route: 048
     Dates: start: 20060112
  24. ACTOS [Concomitant]
     Route: 048
     Dates: start: 20060112
  25. LIPITOR [Concomitant]
     Route: 048
     Dates: start: 20040917
  26. CYMBALTA [Concomitant]
     Route: 048
     Dates: start: 20040917
  27. XANAX [Concomitant]
     Indication: ANXIETY
     Route: 048
     Dates: start: 20060112
  28. XANAX [Concomitant]
     Indication: PANIC ATTACK
     Route: 048
     Dates: start: 20060112
  29. PREDNISONE [Concomitant]
     Route: 048
     Dates: start: 20060112

REACTIONS (9)
  - DIABETES MELLITUS INADEQUATE CONTROL [None]
  - DIABETIC FOOT [None]
  - DIABETIC KETOACIDOSIS [None]
  - DIABETIC NEUROPATHY [None]
  - DIABETIC RETINOPATHY [None]
  - HYPERGLYCAEMIA [None]
  - HYPERGLYCAEMIC HYPEROSMOLAR NONKETOTIC SYNDROME [None]
  - NEUROPATHY PERIPHERAL [None]
  - TYPE 1 DIABETES MELLITUS [None]
